FAERS Safety Report 18646711 (Version 1)
Quarter: 2020Q4

REPORT INFORMATION
  Report Type: Spontaneous
  Country: DE (occurrence: DE)
  Receive Date: 20201222
  Receipt Date: 20201222
  Transmission Date: 20210114
  Serious: Yes (Life-Threatening, Hospitalization)
  Sender: FDA-Public Use
  Company Number: DE-DRREDDYS-GER/GER/20/0130095

PATIENT
  Age: 3 Year
  Sex: Male
  Weight: 16 kg

DRUGS (1)
  1. CETIRIZINE [Suspect]
     Active Substance: CETIRIZINE HYDROCHLORIDE
     Indication: ACCIDENTAL EXPOSURE TO PRODUCT BY CHILD
     Dosage: DAILY DOSE: 55 MG MILLGRAM(S) EVERY DAYS
     Route: 048
     Dates: start: 20200313, end: 20200313

REACTIONS (5)
  - Product administration error [Recovering/Resolving]
  - Accidental exposure to product by child [Recovering/Resolving]
  - Product storage error [Recovering/Resolving]
  - Fatigue [Recovering/Resolving]
  - Toxicity to various agents [Recovering/Resolving]

NARRATIVE: CASE EVENT DATE: 20200313
